FAERS Safety Report 19753095 (Version 1)
Quarter: 2021Q3

REPORT INFORMATION
  Report Type: Spontaneous
  Country: US (occurrence: US)
  Receive Date: 20210826
  Receipt Date: 20210826
  Transmission Date: 20211014
  Serious: Yes (Hospitalization, Other)
  Sender: FDA-Public Use
  Company Number: US-TEVA-2021-US-1944080

PATIENT
  Age: 70 Year
  Sex: Male

DRUGS (2)
  1. TEVA^S DISCONTINUED PHENTERMINE CAPSULES [Suspect]
     Active Substance: PHENTERMINE
     Indication: WEIGHT ABNORMAL
     Route: 065
  2. ADIPEX?P [Suspect]
     Active Substance: PHENTERMINE HYDROCHLORIDE
     Route: 065

REACTIONS (10)
  - Skin disorder [Recovered/Resolved]
  - Fracture [Unknown]
  - Infection [Unknown]
  - Chapped lips [Recovered/Resolved]
  - Pruritus [Recovered/Resolved]
  - Head injury [Recovered/Resolved]
  - Oedema [Unknown]
  - Skin exfoliation [Recovered/Resolved]
  - Abdominal pain upper [Recovered/Resolved]
  - Haemorrhage [Recovered/Resolved]
